FAERS Safety Report 17027337 (Version 1)
Quarter: 2019Q4

REPORT INFORMATION
  Report Type: Spontaneous
  Country: US (occurrence: US)
  Receive Date: 20191009
  Receipt Date: 20191009
  Transmission Date: 20200122
  Serious: Yes (Hospitalization)
  Sender: FDA-Public Use
  Company Number: None

PATIENT
  Age: 77 Year
  Sex: Female
  Weight: 45.36 kg

DRUGS (6)
  1. ELEQUIS [Concomitant]
  2. FUROSEMIDE. [Concomitant]
     Active Substance: FUROSEMIDE
  3. MULTAQ [Concomitant]
     Active Substance: DRONEDARONE
  4. VITAMIN D [Concomitant]
     Active Substance: VITAMIN D NOS
  5. FIRDAPSE [Suspect]
     Active Substance: AMIFAMPRIDINE
     Indication: MYASTHENIC SYNDROME
     Dosage: ?          QUANTITY:2 PILLS;?
     Route: 048
     Dates: start: 20190220
  6. METPROL [Concomitant]

REACTIONS (6)
  - Pneumonia [None]
  - Peripheral swelling [None]
  - Atrial fibrillation [None]
  - Heart rate increased [None]
  - Chest pain [None]
  - Joint swelling [None]

NARRATIVE: CASE EVENT DATE: 20190225
